FAERS Safety Report 6014145 (Version 1)
Quarter: 2020Q3

REPORT INFORMATION
  Report Type: Report from Study
  Country: US (occurrence: US)
  Receive Date: 20060329
  Receipt Date: 20060329
  Transmission Date: 20201104
  Serious: Yes (Hospitalization)
  Sender: FDA-Public Use
  Company Number: US-JNJFOC-20030804202

PATIENT
  Age: 56 Year
  Sex: Male
  Weight: 61.24 kg

DRUGS (12)
  1. PANCRELIPASE [Concomitant]
     Dosage: 3 TABLETS WITH MEALS, 2 TABLETS WITH SNACKS
     Route: 048
  2. FAMOTIDINE. [Concomitant]
     Active Substance: FAMOTIDINE
     Route: 048
  3. NPH INSULIN [Concomitant]
     Active Substance: INSULIN BEEF
     Route: 058
  4. LEXAPRO [Concomitant]
     Active Substance: ESCITALOPRAM OXALATE
     Route: 048
  5. GEMCITABINE. [Suspect]
     Active Substance: GEMCITABINE
     Route: 042
  6. ZOFRAN [Concomitant]
     Active Substance: ONDANSETRON HYDROCHLORIDE
     Route: 042
  7. MAALOX ANTACID [Concomitant]
     Active Substance: ALUMINUM HYDROXIDE\DIMETHICONE\MAGNESIUM HYDROXIDE
     Route: 048
  8. MAALOX ANTACID [Concomitant]
     Active Substance: ALUMINUM HYDROXIDE\DIMETHICONE\MAGNESIUM HYDROXIDE
     Route: 048
  9. SENOKOT [Concomitant]
     Active Substance: SENNOSIDES
     Dosage: 1?2 DAILY PRN
     Route: 048
  10. OXYCODONE [Concomitant]
     Active Substance: OXYCODONE
  11. INFLIXIMAB [Suspect]
     Active Substance: INFLIXIMAB
     Indication: CACHEXIA
     Route: 042
  12. HYOSCYAMINE. [Concomitant]
     Active Substance: HYOSCYAMINE
     Route: 048

REACTIONS (5)
  - Chills [Recovered/Resolved]
  - Abdominal pain [Recovered/Resolved]
  - Pyrexia [Recovered/Resolved]
  - Back pain [Recovered/Resolved]
  - Leukocytosis [Recovered/Resolved]

NARRATIVE: CASE EVENT DATE: 20030815
